FAERS Safety Report 7214912-7 (Version None)
Quarter: 2011Q1

REPORT INFORMATION
  Report Type: 
  Country: None (occurrence: None)
  Receive Date: 20110107
  Receipt Date: 20100623
  Transmission Date: 20110831
  Serious: No
  Sender: FDA-Public Use
  Company Number: A0858925A

PATIENT
  Sex: Female

DRUGS (9)
  1. CRESTOR [Concomitant]
  2. ASPIRIN [Concomitant]
  3. ADVAIR [Concomitant]
  4. NIACIN [Concomitant]
  5. SINGULAIR [Concomitant]
  6. CITRACAL [Concomitant]
  7. AVAPRO [Concomitant]
  8. LOVAZA [Suspect]
     Indication: LIPIDS ABNORMAL
     Dosage: 1CAP PER DAY
     Route: 048
  9. MULTI-VITAMIN [Concomitant]

REACTIONS (1)
  - NAUSEA [None]
